FAERS Safety Report 14170373 (Version 1)
Quarter: 2017Q4

REPORT INFORMATION
  Report Type: Spontaneous
  Country: US (occurrence: None)
  Receive Date: 20171108
  Receipt Date: 20171108
  Transmission Date: 20180321
  Serious: No
  Sender: FDA-Public Use
  Company Number: None

PATIENT
  Sex: Female
  Weight: 128.82 kg

DRUGS (2)
  1. OTREXUP [Suspect]
     Active Substance: METHOTREXATE
     Indication: PRODUCT USED FOR UNKNOWN INDICATION
     Route: 058
     Dates: start: 201705
  2. OTREXUP [Suspect]
     Active Substance: METHOTREXATE
     Indication: OSTEOPOROSIS
     Route: 058
     Dates: start: 201705

REACTIONS (1)
  - Fatigue [None]
